FAERS Safety Report 12616880 (Version 3)
Quarter: 2021Q2

REPORT INFORMATION
  Report Type: Spontaneous
  Country: US (occurrence: US)
  Receive Date: 20160802
  Receipt Date: 20210529
  Transmission Date: 20210716
  Serious: Yes (Hospitalization, Other)
  Sender: FDA-Public Use
  Company Number: US-JNJFOC-20160719470

PATIENT
  Age: 53 Year
  Sex: Male
  Weight: 73 kg

DRUGS (2)
  1. ALCOHOL. [Suspect]
     Active Substance: ALCOHOL
     Indication: PRODUCT USED FOR UNKNOWN INDICATION
     Dosage: EQUIVALENT TO 1/5TH PER DAY FOR 14 DAYS
     Route: 065
  2. PARACETAMOL [Suspect]
     Active Substance: ACETAMINOPHEN
     Indication: PRODUCT USED FOR UNKNOWN INDICATION
     Dosage: 28,000 MG OVER A 7 DAY PERIOD
     Route: 065
     Dates: end: 19991030

REACTIONS (3)
  - Acute hepatic failure [Recovered/Resolved]
  - Overdose [Recovering/Resolving]
  - Product administration error [Recovering/Resolving]

NARRATIVE: CASE EVENT DATE: 19991027
